FAERS Safety Report 19443824 (Version 1)
Quarter: 2021Q2

REPORT INFORMATION
  Report Type: Spontaneous
  Country: IE (occurrence: IE)
  Receive Date: 20210621
  Receipt Date: 20210621
  Transmission Date: 20210717
  Serious: Yes (Other)
  Sender: FDA-Public Use
  Company Number: IE-PFIZER INC-2021620878

PATIENT
  Age: 35 Year
  Sex: Female

DRUGS (2)
  1. PEG 3350 [Suspect]
     Active Substance: POLYETHYLENE GLYCOL 3350
     Route: 030
  2. DEPO?PROVERA [Suspect]
     Active Substance: MEDROXYPROGESTERONE ACETATE
     Dosage: UNK
     Route: 030

REACTIONS (3)
  - Anaphylactic reaction [Recovering/Resolving]
  - Reaction to excipient [Recovering/Resolving]
  - Hypersensitivity [Recovering/Resolving]
